FAERS Safety Report 4958935-7 (Version None)
Quarter: 2006Q1

REPORT INFORMATION
  Report Type: 
  Country: None (occurrence: None)
  Receive Date: 20060324
  Receipt Date: 20060314
  Transmission Date: 20060701
  Serious: Yes (Life-Threatening, Hospitalization, Other)
  Sender: FDA-Public Use
  Company Number: HQWYE324414MAR06

PATIENT
  Age: 27 Year
  Sex: Female

DRUGS (7)
  1. PANTOZOL (PANTOPRAZOLE,  INJECTION) [Suspect]
     Indication: GASTRIC ULCER
     Dosage: SEE IMAGE, INTRAVENOUS
     Route: 042
     Dates: start: 20040816, end: 20040816
  2. PANTOZOL (PANTOPRAZOLE,  INJECTION) [Suspect]
     Indication: GASTRIC ULCER
     Dosage: SEE IMAGE, INTRAVENOUS
     Route: 042
     Dates: start: 20040816, end: 20040818
  3. PANTOPRAZOLE SODIUM [Suspect]
     Indication: GASTRIC ULCER
     Dosage: 40 MG 2X PER 1 DAY, ORAL
     Route: 048
     Dates: start: 20040820, end: 20040822
  4. MORPHINE [Concomitant]
  5. GRAVOL TAB [Concomitant]
  6. ZANTAC [Concomitant]
  7. ATASOL WITH CODEINE-CAFFEINE (CAFFEINE/CODEINE PHOSPHATE/PARACETAMOL) [Concomitant]

REACTIONS (4)
  - BLOOD PRESSURE INCREASED [None]
  - EYE PAIN [None]
  - FEELING HOT [None]
  - HEADACHE [None]
